FAERS Safety Report 4338339-0 (Version None)
Quarter: 2004Q2

REPORT INFORMATION
  Report Type: 
  Country: None (occurrence: None)
  Receive Date: 20040409
  Receipt Date: 20040401
  Transmission Date: 20050107
  Serious: Yes (Other)
  Sender: FDA-Public Use
  Company Number: K200400485

PATIENT
  Age: 66 Year
  Sex: Female

DRUGS (11)
  1. ALTACE [Suspect]
     Indication: CARDIAC FAILURE CONGESTIVE
     Dosage: 5 MG, QD, ORAL
     Route: 048
  2. SODIUM AUROTHIOMAL (SODIUM AUROTHIOMALATE) SOLUTION, 50MG [Suspect]
     Indication: RHEUMATOID ARTHRITIS
     Dosage: 50 MG, QD, INTRAMUSCULAR
     Route: 030
     Dates: start: 20040220, end: 20040318
  3. CANDESARTAN (CANDESARTAN) [Concomitant]
  4. CETIRIZINE HCL [Concomitant]
  5. CITALOPRAM [Concomitant]
  6. DIGOXIN [Concomitant]
  7. FUROSEMIDE [Concomitant]
  8. METFORMIN HCL [Concomitant]
  9. KAPAKE (CODEINE PHOSPHATE, PARACETAMOL) [Concomitant]
  10. HUMALOG [Concomitant]
  11. PRAVASTATIN [Concomitant]

REACTIONS (3)
  - FLUSHING [None]
  - LOSS OF CONSCIOUSNESS [None]
  - NAUSEA [None]
